FAERS Safety Report 5513359-9 (Version None)
Quarter: 2007Q4

REPORT INFORMATION
  Report Type: 
  Country: None (occurrence: None)
  Receive Date: 20071112
  Receipt Date: 20071102
  Transmission Date: 20080405
  Serious: Yes (Other)
  Sender: FDA-Public Use
  Company Number: US-PFIZER INC-2007092957

PATIENT
  Sex: Female
  Weight: 104.54 kg

DRUGS (9)
  1. CELEBREX [Suspect]
     Indication: SYSTEMIC LUPUS ERYTHEMATOSUS
  2. CELEBREX [Suspect]
     Indication: RHEUMATOID ARTHRITIS
  3. METHYLPREDNISOLONE [Suspect]
     Indication: EXOSTOSIS
     Dates: start: 20070101, end: 20070101
  4. PLAQUENIL [Concomitant]
  5. PARAFON FORTE [Concomitant]
  6. LEXAPRO [Concomitant]
  7. DARVOCET [Concomitant]
  8. OMEGA 3 [Concomitant]
  9. VITAMIN B-12 [Concomitant]
     Route: 051

REACTIONS (4)
  - EXOSTOSIS [None]
  - FALL [None]
  - FIBROMYALGIA [None]
  - PALPITATIONS [None]
